FAERS Safety Report 9170619 (Version 2)
Quarter: 2013Q2

REPORT INFORMATION
  Report Type: Report from Study
  Country: CA (occurrence: CA)
  Receive Date: 20130319
  Receipt Date: 20130408
  Transmission Date: 20140414
  Serious: Yes (Hospitalization)
  Sender: FDA-Public Use
  Company Number: CA-JNJFOC-20130304086

PATIENT
  Age: 58 Year
  Sex: Female
  Weight: 80 kg

DRUGS (8)
  1. REMICADE [Suspect]
     Indication: CROHN^S DISEASE
     Route: 042
     Dates: start: 20111123
  2. HYDROMORPHONE CONTIN [Concomitant]
     Route: 065
  3. ELAVIL [Concomitant]
     Route: 065
  4. RABEPRAZOLE [Concomitant]
     Route: 065
  5. LOMOTIL [Concomitant]
     Route: 065
  6. ONDANSETRON [Concomitant]
     Route: 065
  7. CLONAZEPAM [Concomitant]
     Route: 065
  8. DOCUSATE [Concomitant]
     Route: 065

REACTIONS (2)
  - Hernia [Recovering/Resolving]
  - Gastrointestinal perforation [Recovering/Resolving]
